FAERS Safety Report 6060413-1 (Version None)
Quarter: 2009Q1

REPORT INFORMATION
  Report Type: 
  Country: None (occurrence: None)
  Receive Date: 20090129
  Receipt Date: 20090129
  Transmission Date: 20090719
  Serious: Yes (Life-Threatening, Disabling)
  Sender: FDA-Public Use
  Company Number: None

PATIENT
  Age: 30 Year
  Sex: Female
  Weight: 136.0791 kg

DRUGS (1)
  1. DAYQUIL 15 MG VICKS [Suspect]
     Indication: NASOPHARYNGITIS
     Dosage: 15 ML 1 TIME PO
     Route: 048
     Dates: start: 20090121, end: 20090121

REACTIONS (5)
  - ABDOMINAL DISCOMFORT [None]
  - ANAPHYLACTIC SHOCK [None]
  - ANXIETY [None]
  - DIARRHOEA [None]
  - HEART RATE IRREGULAR [None]
